FAERS Safety Report 6419118-7 (Version None)
Quarter: 2009Q4

REPORT INFORMATION
  Report Type: 
  Country: None (occurrence: None)
  Receive Date: 20091027
  Receipt Date: 20091016
  Transmission Date: 20100525
  Serious: Yes (Hospitalization)
  Sender: FDA-Public Use
  Company Number: THQ2009A04604

PATIENT
  Age: 70 Year
  Sex: Female

DRUGS (1)
  1. LANSOPRAZOLE [Suspect]
     Dosage: 30 MG, PER ORAL
     Route: 048
     Dates: start: 20091013

REACTIONS (1)
  - ATRIAL FIBRILLATION [None]
